FAERS Safety Report 5002141-7 (Version None)
Quarter: 2006Q2

REPORT INFORMATION
  Report Type: 
  Country: None (occurrence: None)
  Receive Date: 20060515
  Receipt Date: 20060503
  Transmission Date: 20061013
  Serious: Yes (Hospitalization)
  Sender: FDA-Public Use
  Company Number: US-MERCK-0605USA00860

PATIENT
  Age: 45 Year
  Sex: Male
  Weight: 86 kg

DRUGS (9)
  1. VIOXX [Suspect]
     Indication: ARTHRITIS
     Route: 048
     Dates: start: 20021201, end: 20040501
  2. VIOXX [Suspect]
     Route: 048
     Dates: start: 20021201, end: 20040501
  3. FROVA [Concomitant]
     Route: 065
  4. IMIPRAMINE HYDROCHLORIDE [Concomitant]
     Route: 065
  5. ADVAIR DISKUS 100/50 [Concomitant]
     Route: 065
  6. ADVICOR [Concomitant]
     Route: 065
  7. VIAGRA [Concomitant]
     Route: 065
  8. [COMPOSITION UNSPECIFIED] [Concomitant]
     Route: 065
  9. CHLORPROMAZINE [Concomitant]
     Route: 065

REACTIONS (1)
  - MYOCARDIAL INFARCTION [None]
